FAERS Safety Report 18913833 (Version 1)
Quarter: 2021Q1

REPORT INFORMATION
  Report Type: Spontaneous
  Country: US (occurrence: US)
  Receive Date: 20210218
  Receipt Date: 20210218
  Transmission Date: 20210420
  Serious: No
  Sender: FDA-Public Use
  Company Number: US-NOVOPROD-710344

PATIENT
  Age: 80 Year
  Sex: Female

DRUGS (3)
  1. OFEV [Suspect]
     Active Substance: NINTEDANIB
     Dosage: 100 MG, QD (2 CAPSULES)
     Route: 048
  2. VICTOZA [Suspect]
     Active Substance: LIRAGLUTIDE
     Indication: PRODUCT USED FOR UNKNOWN INDICATION
     Dosage: UNK
     Route: 058
  3. OFEV [Suspect]
     Active Substance: NINTEDANIB
     Indication: IDIOPATHIC PULMONARY FIBROSIS
     Dosage: 150 MG, BID
     Route: 048
     Dates: start: 20180414

REACTIONS (10)
  - Dermatitis contact [Unknown]
  - Diarrhoea [Recovered/Resolved with Sequelae]
  - Diarrhoea [Recovered/Resolved]
  - Cough [Unknown]
  - Dyspnoea exertional [Unknown]
  - Cystitis [Unknown]
  - Nasopharyngitis [Unknown]
  - Productive cough [Unknown]
  - Diarrhoea [Unknown]
  - Headache [Not Recovered/Not Resolved]
